FAERS Safety Report 4825051-4 (Version None)
Quarter: 2005Q4

REPORT INFORMATION
  Report Type: 
  Country: None (occurrence: None)
  Receive Date: 20051108
  Receipt Date: 20051026
  Transmission Date: 20060501
  Serious: Yes (Death, Hospitalization)
  Sender: FDA-Public Use
  Company Number: A-CH2005-10577

PATIENT
  Age: 37 Year
  Sex: Male

DRUGS (4)
  1. TRACLEER [Suspect]
     Indication: PULMONARY HYPERTENSION
     Dosage: SEE IMAGE
     Route: 048
     Dates: start: 20050401, end: 20050501
  2. TRACLEER [Suspect]
     Indication: PULMONARY HYPERTENSION
     Dosage: SEE IMAGE
     Route: 048
     Dates: start: 20050501, end: 20050907
  3. LASIX [Concomitant]
  4. SPIRONOLACTONE [Concomitant]

REACTIONS (8)
  - ASCITES [None]
  - CARDIAC FAILURE [None]
  - CONDITION AGGRAVATED [None]
  - COR PULMONALE [None]
  - HEPATIC STEATOSIS [None]
  - PLEURAL EFFUSION [None]
  - PULMONARY EMBOLISM [None]
  - RESPIRATORY FAILURE [None]
